FAERS Safety Report 5905759-X (Version None)
Quarter: 2008Q4

REPORT INFORMATION
  Report Type: 
  Country: None (occurrence: None)
  Receive Date: 20081002
  Receipt Date: 20080926
  Transmission Date: 20090506
  Serious: Yes (Death)
  Sender: FDA-Public Use
  Company Number: A0715888A

PATIENT
  Age: 67 Year
  Sex: Female
  Weight: 76.4 kg

DRUGS (2)
  1. AVANDIA [Suspect]
     Indication: DIABETES MELLITUS
     Route: 048
     Dates: start: 20050101, end: 20060812
  2. TYLENOL (CAPLET) [Concomitant]

REACTIONS (1)
  - CARDIAC FAILURE CONGESTIVE [None]
